FAERS Safety Report 4442565-X (Version None)
Quarter: 2004Q3

REPORT INFORMATION
  Report Type: 
  Country: None (occurrence: None)
  Receive Date: 20040903
  Receipt Date: 20040713
  Transmission Date: 20050211
  Serious: Yes (Other)
  Sender: FDA-Public Use
  Company Number: 2004UW14468

PATIENT
  Age: 83 Year
  Sex: Male
  Weight: 81.6475 kg

DRUGS (8)
  1. CRESTOR [Suspect]
     Indication: BLOOD CHOLESTEROL
     Dosage: 10 MG DAILY PO
     Route: 048
     Dates: start: 20040517
  2. GLUCOVANCE [Concomitant]
  3. ACTOS [Concomitant]
  4. DIAZIDE [Concomitant]
  5. COUMADIN [Concomitant]
  6. CAPTOPRIL [Concomitant]
  7. NEXIUM [Concomitant]
  8. PRANDIN [Concomitant]

REACTIONS (1)
  - BLOOD GLUCOSE DECREASED [None]
